FAERS Safety Report 18413956 (Version 1)
Quarter: 2020Q4

REPORT INFORMATION
  Report Type: Spontaneous
  Country: JP (occurrence: JP)
  Receive Date: 20201022
  Receipt Date: 20201022
  Transmission Date: 20210114
  Serious: Yes (Other)
  Sender: FDA-Public Use
  Company Number: NVSJ2020JP010513

PATIENT
  Age: 31 Year
  Sex: Female

DRUGS (1)
  1. IMUSERA [Suspect]
     Active Substance: FINGOLIMOD HYDROCHLORIDE
     Indication: MULTIPLE SCLEROSIS
     Dosage: 0.5 MG, QW
     Route: 048

REACTIONS (7)
  - Tremor [Unknown]
  - Atrioventricular block second degree [Unknown]
  - Lymphocyte count decreased [Unknown]
  - Multiple sclerosis relapse [Unknown]
  - Underdose [Unknown]
  - Quadriplegia [Unknown]
  - Cerebellar ataxia [Unknown]

NARRATIVE: CASE EVENT DATE: 201209
